FAERS Safety Report 8926659 (Version 1)
Quarter: 2012Q4

REPORT INFORMATION
  Report Type: 
  Country: DE (occurrence: DE)
  Receive Date: 20121127
  Receipt Date: 20121127
  Transmission Date: 20130627
  Serious: Yes (Other)
  Sender: FDA-Public Use
  Company Number: DE-PFIZER INC-2012295756

PATIENT
  Age: 53 Year
  Sex: Female

DRUGS (1)
  1. VENLAFAXINE HYDROCHLORIDE [Suspect]
     Indication: DEPRESSIVE EPISODE
     Dosage: 75 mg, UNK
     Dates: start: 20120715, end: 20120715

REACTIONS (2)
  - Restlessness [Recovered/Resolved]
  - Hot flush [Recovered/Resolved]
